FAERS Safety Report 7111076-5 (Version None)
Quarter: 2010Q4

REPORT INFORMATION
  Report Type: 
  Country: None (occurrence: None)
  Receive Date: 20101118
  Receipt Date: 20101112
  Transmission Date: 20110411
  Serious: Yes (Other)
  Sender: FDA-Public Use
  Company Number: US-AMGEN-USASP2010004791

PATIENT

DRUGS (3)
  1. NPLATE [Suspect]
     Indication: PRODUCT USED FOR UNKNOWN INDICATION
     Dosage: 500 A?G, UNK
     Dates: start: 20101112, end: 20101112
  2. CISPLATIN [Concomitant]
     Dosage: UNK
     Route: 033
     Dates: start: 20101112, end: 20101112
  3. PACLITAXEL [Concomitant]
     Dosage: UNK
     Route: 042
     Dates: start: 20101112, end: 20101112

REACTIONS (1)
  - INCORRECT ROUTE OF DRUG ADMINISTRATION [None]
